FAERS Safety Report 9300682 (Version 1)
Quarter: 2013Q1

REPORT INFORMATION
  Report Type: Spontaneous
  Country: US (occurrence: None)
  Receive Date: 20130107
  Receipt Date: 20130107
  Transmission Date: 20140127
  Serious: Yes (Other)
  Sender: FDA-Public Use
  Company Number: PHEH2012US022018

PATIENT
  Age: 45 Year
  Sex: Female
  Weight: 70.3 kg

DRUGS (4)
  1. GILENYA [Suspect]
     Indication: MULTIPLE SCLEROSIS
     Route: 048
  2. ZOLOFT (SERTRALINE HYDROCHLORIDE) TABLET [Concomitant]
  3. PROVIGIL (MODAFINIL) TABLET [Concomitant]
  4. NEXIUM (AMOXICILLIN TRIHYDRATE, CLARITHROMYCIN, ESOMEPRAZOLE MAGNESIUM) CAPSULE [Concomitant]

REACTIONS (3)
  - Weight decreased [None]
  - Faeces discoloured [None]
  - Decreased appetite [None]
